FAERS Safety Report 8348938-7 (Version None)
Quarter: 2012Q2

REPORT INFORMATION
  Report Type: 
  Country: None (occurrence: None)
  Receive Date: 20120508
  Receipt Date: 20120423
  Transmission Date: 20120825
  Serious: Yes (Other)
  Sender: FDA-Public Use
  Company Number: 2012MA005302

PATIENT
  Age: 70 Year
  Sex: Female

DRUGS (5)
  1. PACLITAXEL [Suspect]
     Indication: BREAST CANCER STAGE II
  2. CYCLOPHOSPHAMIDE [Suspect]
     Indication: BREAST CANCER STAGE II
  3. DOXORUBICIN HCL [Suspect]
     Indication: BREAST CANCER STAGE II
  4. TAMOXIFEN CITRATE [Suspect]
     Indication: BREAST CANCER STAGE II
  5. LETROZOLE [Suspect]
     Indication: BREAST CANCER STAGE II

REACTIONS (1)
  - ACUTE MYELOID LEUKAEMIA [None]
